FAERS Safety Report 8090934 (Version 6)
Quarter: 2012Q4

REPORT INFORMATION
  Report Type: 
  Country: US (occurrence: US)
  Receive Date: 20110816
  Receipt Date: 20121228
  Transmission Date: 20130627
  Serious: Yes (Hospitalization, Other)
  Sender: FDA-Public Use
  Company Number: US-BIOGENIDEC-2011BI030357

PATIENT
  Age: 49 Year
  Sex: Female

DRUGS (15)
  1. TYSABRI [Suspect]
     Indication: MULTIPLE SCLEROSIS
     Route: 042
     Dates: start: 20070724, end: 20110722
  2. TYSABRI [Suspect]
     Indication: MULTIPLE SCLEROSIS
     Dates: start: 20120625
  3. TYSABRI [Suspect]
     Indication: MULTIPLE SCLEROSIS
     Dates: start: 201212
  4. PROTONIX [Concomitant]
  5. BUSPAR [Concomitant]
  6. CYMBALTA [Concomitant]
  7. FLONASE [Concomitant]
     Route: 045
  8. VICODIN [Concomitant]
  9. CRESTOR [Concomitant]
  10. MULTIVITAMIN [Concomitant]
  11. VESICARE [Concomitant]
  12. VITAMIN D3 [Concomitant]
  13. MOBIC [Concomitant]
  14. INSULIN [Concomitant]
  15. SYNTHROID [Concomitant]

REACTIONS (2)
  - White blood cell count decreased [Not Recovered/Not Resolved]
  - Non-Hodgkin^s lymphoma [Recovered/Resolved]
